FAERS Safety Report 11368356 (Version 2)
Quarter: 2015Q3

REPORT INFORMATION
  Report Type: Spontaneous
  Country: US (occurrence: None)
  Receive Date: 20150811
  Receipt Date: 20150811
  Transmission Date: 20151125
  Serious: Yes (Other)
  Sender: FDA-Public Use
  Company Number: None

PATIENT
  Age: 54 Year
  Sex: Female
  Weight: 63.5 kg

DRUGS (6)
  1. BUFFERED ASA [Concomitant]
  2. DROXIA [Concomitant]
     Active Substance: HYDROXYUREA
  3. FLONASE [Concomitant]
     Active Substance: FLUTICASONE PROPIONATE
  4. MULTIMINERAL [Concomitant]
  5. VALACYCLOVIR [Suspect]
     Active Substance: VALACYCLOVIR HYDROCHLORIDE
     Indication: ORAL HERPES
     Dosage: 1
     Route: 048
     Dates: start: 20150809, end: 20150809
  6. MULTIVITAMIN [Concomitant]
     Active Substance: VITAMINS

REACTIONS (6)
  - Abdominal pain [None]
  - Diarrhoea [None]
  - Abdominal distension [None]
  - Back pain [None]
  - Gastroenteritis viral [None]
  - Nausea [None]

NARRATIVE: CASE EVENT DATE: 20150809
